FAERS Safety Report 16997142 (Version 3)
Quarter: 2019Q4

REPORT INFORMATION
  Report Type: Report from Study
  Country: None (occurrence: BE)
  Receive Date: 20191105
  Receipt Date: 20191113
  Transmission Date: 20200122
  Serious: Yes (Hospitalization)
  Sender: FDA-Public Use
  Company Number: BE-ABBVIE-19K-013-2985506-00

PATIENT
  Sex: Male

DRUGS (5)
  1. DUODOPA [Suspect]
     Active Substance: CARBIDOPA\LEVODOPA
     Dosage: MD= 3ML, CD= 5ML/HR DURING 16HRS, ED= 1.5ML, ND= 2.5ML/HR DURING 8HRS
     Route: 050
     Dates: start: 20191030, end: 20191106
  2. DUODOPA [Suspect]
     Active Substance: CARBIDOPA\LEVODOPA
     Dosage: MD= 5ML, CD= 5ML/HR DURING 16HRS, ED= 2ML, ND= 2.5ML/HR DURING 8HRS
     Route: 050
     Dates: start: 20191106
  3. DUODOPA [Suspect]
     Active Substance: CARBIDOPA\LEVODOPA
     Dosage: MD= 4ML, CD= 5ML/HR DURING 16HRS, ED= 1ML, ND= 2.5ML/HR DURING 8HRS
     Route: 050
     Dates: start: 20191022, end: 20191023
  4. DUODOPA [Suspect]
     Active Substance: CARBIDOPA\LEVODOPA
     Indication: PARKINSON^S DISEASE
     Dosage: MD=6ML, CD=4.8ML/HR DURING 16HRS, ED=1ML
     Route: 050
     Dates: start: 20191021, end: 20191022
  5. DUODOPA [Suspect]
     Active Substance: CARBIDOPA\LEVODOPA
     Dosage: MD= 3ML, CD= 4ML/HR DURING 16HRS, ED= 1ML, ND= 2.5ML/HR DURING 8HRS
     Route: 050
     Dates: start: 20191023, end: 20191030

REACTIONS (12)
  - Confusional state [Recovered/Resolved]
  - Nocturia [Unknown]
  - Mobility decreased [Unknown]
  - Disorientation [Unknown]
  - Motor dysfunction [Recovering/Resolving]
  - Pyrexia [Recovered/Resolved]
  - Musculoskeletal stiffness [Unknown]
  - General physical condition abnormal [Recovering/Resolving]
  - Hypersexuality [Unknown]
  - Middle insomnia [Unknown]
  - Infection [Recovering/Resolving]
  - Bradykinesia [Unknown]

NARRATIVE: CASE EVENT DATE: 2019
